FAERS Safety Report 8373975-6 (Version None)
Quarter: 2012Q2

REPORT INFORMATION
  Report Type: 
  Country: None (occurrence: None)
  Receive Date: 20120521
  Receipt Date: 20120508
  Transmission Date: 20120825
  Serious: Yes (Hospitalization, Other)
  Sender: FDA-Public Use
  Company Number: DE-CELGENEUS-062-50794-12050960

PATIENT
  Age: 76 Year
  Sex: Male

DRUGS (8)
  1. VIDAZA [Suspect]
     Route: 058
     Dates: start: 20111201, end: 20111229
  2. VIDAZA [Suspect]
     Route: 058
     Dates: start: 20111122, end: 20111201
  3. VIDAZA [Suspect]
     Route: 058
     Dates: start: 20120305, end: 20120307
  4. POLYETHYLENE GLYCOL [Concomitant]
     Route: 065
  5. TILIDIN [Concomitant]
     Route: 065
  6. VIDAZA [Suspect]
     Route: 058
     Dates: start: 20120123, end: 20120126
  7. LACTULOSE [Concomitant]
     Route: 065
  8. DIPYRONE TAB [Concomitant]
     Route: 065

REACTIONS (7)
  - PAIN [None]
  - LEUKOPENIA [None]
  - SKIN LESION [None]
  - THROMBOCYTOPENIA [None]
  - GENERAL PHYSICAL HEALTH DETERIORATION [None]
  - ANAEMIA [None]
  - FALL [None]
